FAERS Safety Report 7878370-1 (Version None)
Quarter: 2011Q4

REPORT INFORMATION
  Report Type: 
  Country: None (occurrence: None)
  Receive Date: 20111101
  Receipt Date: 20111019
  Transmission Date: 20120403
  Serious: Yes (Other)
  Sender: FDA-Public Use
  Company Number: PK-RANBAXY-2011RR-49830

PATIENT
  Age: 25 Year
  Sex: Female
  Weight: 50.5 kg

DRUGS (1)
  1. ISOTRETINOIN [Suspect]
     Indication: ACNE
     Dosage: 20 MG, QD
     Route: 048

REACTIONS (1)
  - HYPOTHYROIDISM [None]
